FAERS Safety Report 7859831-8 (Version None)
Quarter: 2011Q4

REPORT INFORMATION
  Report Type: 
  Country: None (occurrence: None)
  Receive Date: 20111027
  Receipt Date: 20111024
  Transmission Date: 20120403
  Serious: Yes (Hospitalization, Disabling, Other)
  Sender: FDA-Public Use
  Company Number: US-PFIZER INC-2011092743

PATIENT
  Sex: Female

DRUGS (2)
  1. ZOLOFT [Concomitant]
     Indication: DEPRESSION
     Dosage: UNK
     Dates: start: 19990101
  2. CHANTIX [Suspect]
     Indication: SMOKING CESSATION THERAPY
     Dosage: STARTER PACK
     Dates: start: 20070314, end: 20080501

REACTIONS (10)
  - SUICIDE ATTEMPT [None]
  - PARANOIA [None]
  - ABNORMAL BEHAVIOUR [None]
  - DELUSION [None]
  - DEPRESSION [None]
  - THINKING ABNORMAL [None]
  - MEMORY IMPAIRMENT [None]
  - INTENTIONAL OVERDOSE [None]
  - MANIA [None]
  - ANXIETY [None]
